FAERS Safety Report 8851940 (Version 2)
Quarter: 2012Q4

REPORT INFORMATION
  Report Type: 
  Country: US (occurrence: US)
  Receive Date: 20121022
  Receipt Date: 20121106
  Transmission Date: 20130627
  Serious: Yes (Hospitalization)
  Sender: FDA-Public Use
  Company Number: US-SANOFI-AVENTIS-2012SA060338

PATIENT
  Age: 82 Year
  Sex: Female

DRUGS (6)
  1. SOLOSTAR [Suspect]
     Indication: TYPE II DIABETES MELLITUS
     Dosage: Therapy start date: one year ago.
     Dates: start: 2011
  2. SOLOSTAR [Suspect]
     Indication: TYPE II DIABETES MELLITUS
     Dosage: Therapy start date: one year ago.
     Dates: start: 2011
  3. SOLOSTAR [Suspect]
     Indication: TYPE II DIABETES MELLITUS
     Dosage: Therapy start date: one year ago.
     Dates: start: 2011
  4. LANTUS SOLOSTAR [Suspect]
     Indication: TYPE II DIABETES MELLITUS
     Dosage: Dose:55 unit(s)
     Route: 058
     Dates: start: 2011
  5. LANTUS SOLOSTAR [Suspect]
     Indication: TYPE II DIABETES MELLITUS
     Dosage: Dose:55 unit(s)
     Route: 058
     Dates: start: 2011
  6. LANTUS SOLOSTAR [Suspect]
     Indication: TYPE II DIABETES MELLITUS
     Dosage: Dose:55 unit(s)
     Route: 058
     Dates: start: 2011

REACTIONS (2)
  - Hospitalisation [Unknown]
  - Hyperglycaemia [Unknown]
